FAERS Safety Report 8807164 (Version 1)
Quarter: 2012Q4

REPORT INFORMATION
  Report Type: 
  Country: BR (occurrence: BR)
  Receive Date: 20120925
  Receipt Date: 20120925
  Transmission Date: 20130627
  Serious: Yes (Hospitalization, Other)
  Sender: FDA-Public Use
  Company Number: BR-ABBOTT-12P-020-0981456-00

PATIENT
  Age: 51 None
  Sex: Female
  Weight: 60 kg

DRUGS (5)
  1. DEPAKOTE [Suspect]
     Indication: CONVULSION
     Dosage: Morning/night
     Route: 048
     Dates: start: 201103, end: 20120607
  2. DEPAKENE [Suspect]
     Indication: CONVULSION
     Dosage: Morning/night (during hospitalization)
     Dates: start: 20120607, end: 20120901
  3. PURAN T4 [Concomitant]
     Indication: HYPOTHYROIDISM
     Route: 048
  4. TOPIRAMATE [Concomitant]
     Indication: PRODUCT USED FOR UNKNOWN INDICATION
  5. OXYGEN [Concomitant]
     Indication: PRODUCT USED FOR UNKNOWN INDICATION
     Dosage: Every 3 hours

REACTIONS (14)
  - Aspiration [Recovered/Resolved]
  - Aspiration [Recovered/Resolved]
  - Lung infection [Recovered/Resolved]
  - Convulsion [Unknown]
  - Vomiting [Recovered/Resolved]
  - Vomiting [Recovered/Resolved]
  - Dyspnoea [Recovered/Resolved]
  - Medical induction of coma [Recovered/Resolved]
  - Aphagia [Not Recovered/Not Resolved]
  - Pneumonia [Recovered/Resolved]
  - Wrong technique in drug usage process [Unknown]
  - Urinary tract infection [Recovered/Resolved]
  - Gastrointestinal tube insertion [Not Recovered/Not Resolved]
  - Faecal incontinence [Unknown]
